FAERS Safety Report 4551983-0 (Version None)
Quarter: 2005Q1

REPORT INFORMATION
  Report Type: 
  Country: None (occurrence: None)
  Receive Date: 20050112
  Receipt Date: 20041229
  Transmission Date: 20050727
  Serious: Yes (Hospitalization)
  Sender: FDA-Public Use
  Company Number: 9591

PATIENT
  Age: 15 Year

DRUGS (9)
  1. METHOTREXATE [Suspect]
     Indication: ACUTE LYMPHOCYTIC LEUKAEMIA
     Dosage: 10500 MG, IV
     Route: 042
     Dates: start: 20041020, end: 20041020
  2. METHOTREXATE [Suspect]
     Indication: ACUTE LYMPHOCYTIC LEUKAEMIA
     Dosage: 10500 MG, IV
     Route: 042
     Dates: start: 20041103, end: 20041103
  3. METHOTREXATE [Suspect]
     Indication: ACUTE LYMPHOCYTIC LEUKAEMIA
     Dosage: 10500 MG, IV
     Route: 042
     Dates: start: 20041117, end: 20041117
  4. METHOTREXATE [Suspect]
     Indication: ACUTE LYMPHOCYTIC LEUKAEMIA
     Dosage: 10500 MG, IV
     Route: 042
     Dates: start: 20041207
  5. METHOTREXATE SODIUM  TABS (BATCH: #04B26PH) [Suspect]
     Indication: ACUTE LYMPHOCYTIC LEUKAEMIA
     Dosage: 12 MG, IT
     Route: 037
     Dates: start: 20041020, end: 20041020
  6. METHOTREXATE SODIUM  TABS (BATCH: #04B26PH) [Suspect]
     Indication: ACUTE LYMPHOCYTIC LEUKAEMIA
     Dosage: 12 MG, IT
     Route: 037
     Dates: start: 20041103, end: 20041103
  7. METHOTREXATE SODIUM  TABS (BATCH: #04B26PH) [Suspect]
     Indication: ACUTE LYMPHOCYTIC LEUKAEMIA
     Dosage: 12 MG, IT
     Route: 037
     Dates: start: 20041117, end: 20041117
  8. METHOTREXATE SODIUM  TABS (BATCH: #04B26PH) [Suspect]
     Indication: ACUTE LYMPHOCYTIC LEUKAEMIA
     Dosage: 12 MG, IT
     Route: 037
     Dates: start: 20041207, end: 20041207
  9. MERCAPTOPURINE [Concomitant]

REACTIONS (7)
  - ARTHROPATHY [None]
  - ASTHENIA [None]
  - CEREBRAL INFARCTION [None]
  - COORDINATION ABNORMAL [None]
  - FACIAL NERVE DISORDER [None]
  - FACIAL PARESIS [None]
  - NEUROTOXICITY [None]
